FAERS Safety Report 14984058 (Version 1)
Quarter: 2018Q2

REPORT INFORMATION
  Report Type: Spontaneous
  Country: US (occurrence: US)
  Receive Date: 20180517
  Receipt Date: 20180517
  Transmission Date: 20180711
  Serious: Yes (Other)
  Sender: FDA-Public Use
  Company Number: None

PATIENT
  Age: 6 Year
  Sex: Male
  Weight: 25.6 kg

DRUGS (1)
  1. EXONDYS 51 [Suspect]
     Active Substance: ETEPLIRSEN
     Indication: DUCHENNE MUSCULAR DYSTROPHY
     Route: 042
     Dates: start: 20170824, end: 20180504

REACTIONS (4)
  - Chest pain [None]
  - Cough [None]
  - Fatigue [None]
  - Pallor [None]

NARRATIVE: CASE EVENT DATE: 20180504
